FAERS Safety Report 9459461 (Version 3)
Quarter: 2013Q4

REPORT INFORMATION
  Report Type: Spontaneous
  Country: US (occurrence: US)
  Receive Date: 20130815
  Receipt Date: 20131007
  Transmission Date: 20140711
  Serious: No
  Sender: FDA-Public Use
  Company Number: US-B.I. PHARMACEUTICALS,INC./RIDGEFIELD-2013-BI-24281BP

PATIENT
  Sex: Female
  Weight: 56 kg

DRUGS (11)
  1. SPIRIVA [Suspect]
     Indication: CHRONIC OBSTRUCTIVE PULMONARY DISEASE
     Dosage: 18 MCG
     Route: 055
     Dates: start: 2011
  2. ADVAIR [Concomitant]
     Indication: CHRONIC OBSTRUCTIVE PULMONARY DISEASE
     Dosage: (INHALATION AEROSOL) STRENGTH: 250/50; DAILY DOSE: 500/100
     Route: 055
  3. VASOTEC [Concomitant]
     Indication: HYPERTENSION
     Dosage: 10 MG
     Route: 048
  4. CALCIUM [Concomitant]
     Route: 048
  5. TRAMADOL [Concomitant]
     Indication: PAIN
     Dosage: 50 MG
     Route: 048
  6. PREDNISONE [Concomitant]
     Indication: CONNECTIVE TISSUE DISORDER
     Dosage: 5 MG
     Route: 048
  7. COREG [Concomitant]
     Indication: CARDIOMYOPATHY
     Dosage: 25 MG
     Route: 048
  8. VITAMIN D [Concomitant]
     Indication: OSTEOPOROSIS
     Dosage: 2000 U
     Route: 048
  9. ALDACTONE [Concomitant]
     Indication: HYPERTENSION
     Dosage: 25 MG
     Route: 048
  10. ASPIRIN [Concomitant]
     Dosage: 81 MG
     Route: 048
  11. CLONAZEPAM [Concomitant]
     Dosage: 1 MG
     Route: 048

REACTIONS (1)
  - Osteoporosis [Not Recovered/Not Resolved]
